FAERS Safety Report 12510476 (Version 1)
Quarter: 2016Q2

REPORT INFORMATION
  Report Type: Spontaneous
  Country: US (occurrence: US)
  Receive Date: 20160629
  Receipt Date: 20160629
  Transmission Date: 20160815
  Serious: No
  Sender: FDA-Public Use
  Company Number: US-RECKITT BENCKISER HEALTHCARE INT LIMITED-RB-80586-2016

PATIENT
  Sex: Male

DRUGS (2)
  1. MUCINEX [Suspect]
     Active Substance: GUAIFENESIN
     Indication: COUGH
     Dosage: 1 DF, QD
     Route: 065
     Dates: end: 201512
  2. MUCINEX [Suspect]
     Active Substance: GUAIFENESIN
     Indication: RALES
     Dosage: UNK UNK, QID
     Route: 065

REACTIONS (3)
  - No adverse event [Unknown]
  - Product use issue [Unknown]
  - Circumstance or information capable of leading to medication error [Unknown]
